FAERS Safety Report 9692597 (Version 1)
Quarter: 2013Q4

REPORT INFORMATION
  Report Type: Spontaneous
  Country: US (occurrence: None)
  Receive Date: 20131115
  Receipt Date: 20131115
  Transmission Date: 20140711
  Serious: No
  Sender: FDA-Public Use
  Company Number: None

PATIENT
  Age: 32 Year
  Sex: Female
  Weight: 58.97 kg

DRUGS (1)
  1. BOTOX ALLERGAN BOTULINUM TOXIN TYPE-A (NEUROTOXIN) ALLERGAN [Suspect]
     Indication: SKIN COSMETIC PROCEDURE
     Dosage: 25 UNITS, INTO THE MUSCLE

REACTIONS (3)
  - Anxiety [None]
  - Panic attack [None]
  - Disorientation [None]
